FAERS Safety Report 18935492 (Version 3)
Quarter: 2022Q2

REPORT INFORMATION
  Report Type: Spontaneous
  Country: US (occurrence: US)
  Receive Date: 20210224
  Receipt Date: 20220613
  Transmission Date: 20220720
  Serious: No
  Sender: FDA-Public Use
  Company Number: US-ELI_LILLY_AND_COMPANY-US202102011768

PATIENT
  Sex: Male

DRUGS (2)
  1. ZYPREXA [Suspect]
     Active Substance: OLANZAPINE
     Indication: Parkinson^s disease
     Dosage: 2.5 MG, UNKNOWN
     Route: 065
     Dates: start: 1996, end: 201201
  2. SELDANE [Concomitant]
     Active Substance: TERFENADINE
     Indication: Product used for unknown indication
     Dosage: UNK

REACTIONS (9)
  - Peyronie^s disease [Not Recovered/Not Resolved]
  - Confusional state [Unknown]
  - Delirium [Not Recovered/Not Resolved]
  - Hypoglycaemia [Unknown]
  - Erectile dysfunction [Unknown]
  - Anorgasmia [Unknown]
  - Amnesia [Not Recovered/Not Resolved]
  - Type 2 diabetes mellitus [Recovered/Resolved]
  - Dizziness [Not Recovered/Not Resolved]

NARRATIVE: CASE EVENT DATE: 19970101
